FAERS Safety Report 25420526 (Version 4)
Quarter: 2025Q2

REPORT INFORMATION
  Report Type: Report from Study
  Country: JP (occurrence: JP)
  Receive Date: 20250611
  Receipt Date: 20250623
  Transmission Date: 20250717
  Serious: Yes (Hospitalization)
  Sender: ABBVIE
  Company Number: JP-ABBVIE-6153632

PATIENT
  Age: 73 Year
  Sex: Male

DRUGS (2)
  1. VYALEV [Suspect]
     Active Substance: FOSCARBIDOPA\FOSLEVODOPA
     Indication: Parkinson^s disease
     Route: 058
     Dates: start: 20250217
  2. VYALEV [Suspect]
     Active Substance: FOSCARBIDOPA\FOSLEVODOPA
     Route: 058

REACTIONS (17)
  - Delirium [Recovering/Resolving]
  - Infusion site discharge [Unknown]
  - Mobility decreased [Unknown]
  - Discouragement [Unknown]
  - Parkinson^s disease [Unknown]
  - Catheter site discharge [Not Recovered/Not Resolved]
  - Infusion site reaction [Unknown]
  - Infusion site mass [Not Recovered/Not Resolved]
  - Emotional disorder [Unknown]
  - Speech disorder [Unknown]
  - Anxiety [Unknown]
  - Thinking abnormal [Unknown]
  - Intentional medical device removal by patient [Unknown]
  - Agitation [Unknown]
  - Cognitive disorder [Unknown]
  - Unintentional medical device removal [Unknown]
  - Abnormal behaviour [Unknown]

NARRATIVE: CASE EVENT DATE: 20250101
